FAERS Safety Report 17069278 (Version 8)
Quarter: 2020Q2

REPORT INFORMATION
  Report Type: Report from Study
  Country: FR (occurrence: FR)
  Receive Date: 20191125
  Receipt Date: 20200508
  Transmission Date: 20200713
  Serious: Yes (Death, Hospitalization, Other)
  Sender: FDA-Public Use
  Company Number: FR-BRISTOL-MYERS SQUIBB COMPANY-BMS-2019-110315

PATIENT
  Age: 69 Year
  Sex: Male

DRUGS (1)
  1. NIVOLUMAB [Suspect]
     Active Substance: NIVOLUMAB
     Indication: RENAL CELL CARCINOMA
     Dosage: 240 MILLIGRAM, Q2WK
     Route: 042
     Dates: start: 20191016, end: 20191113

REACTIONS (7)
  - Sepsis [Recovered/Resolved]
  - General physical health deterioration [Recovered/Resolved]
  - Anaemia [Recovered/Resolved]
  - General physical condition abnormal [Fatal]
  - Malignant neoplasm progression [Recovered/Resolved]
  - Cholestasis [Unknown]
  - Oedema peripheral [Unknown]

NARRATIVE: CASE EVENT DATE: 20191029
